FAERS Safety Report 4480490-9 (Version None)
Quarter: 2004Q4

REPORT INFORMATION
  Report Type: 
  Country: None (occurrence: None)
  Receive Date: 20041018
  Receipt Date: 20041006
  Transmission Date: 20050328
  Serious: Yes (Hospitalization)
  Sender: FDA-Public Use
  Company Number: 2004-01727

PATIENT
  Age: 54 Year
  Sex: Female
  Weight: 113.4 kg

DRUGS (4)
  1. NICOTINE POLACRILEX [Suspect]
     Indication: SMOKING CESSATION THERAPY
     Dosage: 4 PIECE DAILY BUCCAL
     Route: 002
     Dates: start: 20040929
  2. AMBIEN [Concomitant]
  3. LORAZEPAM [Concomitant]
  4. HYDROXYTRYPTOPHAN [Concomitant]

REACTIONS (12)
  - ABDOMINAL PAIN UPPER [None]
  - ATRIAL FIBRILLATION [None]
  - CONDITION AGGRAVATED [None]
  - DRUG DEPENDENCE [None]
  - DRUG EFFECT DECREASED [None]
  - DRUG WITHDRAWAL SYNDROME [None]
  - FEELING ABNORMAL [None]
  - MEDICATION ERROR [None]
  - ORAL DISCOMFORT [None]
  - PANIC DISORDER [None]
  - STOMACH DISCOMFORT [None]
  - THROAT IRRITATION [None]
